FAERS Safety Report 6593911-2 (Version None)
Quarter: 2010Q1

REPORT INFORMATION
  Report Type: 
  Country: None (occurrence: None)
  Receive Date: 20100222
  Receipt Date: 20100211
  Transmission Date: 20100710
  Serious: Yes (Other)
  Sender: FDA-Public Use
  Company Number: PHHY2010US08252

PATIENT
  Sex: Female

DRUGS (2)
  1. RECLAST [Suspect]
     Dosage: UNK
     Dates: start: 20080101
  2. RECLAST [Suspect]
     Dosage: UNK
     Dates: start: 20090701

REACTIONS (3)
  - CONCOMITANT DISEASE AGGRAVATED [None]
  - FOOT DEFORMITY [None]
  - OSTEITIS DEFORMANS [None]
